FAERS Safety Report 8438543-6 (Version None)
Quarter: 2012Q2

REPORT INFORMATION
  Report Type: 
  Country: None (occurrence: None)
  Receive Date: 20120615
  Receipt Date: 20120612
  Transmission Date: 20120825
  Serious: No
  Sender: FDA-Public Use
  Company Number: US-BIOGENIDEC-2012BI020907

PATIENT
  Age: 33 Year
  Sex: Female

DRUGS (3)
  1. AVONEX [Suspect]
     Indication: MULTIPLE SCLEROSIS
     Route: 030
     Dates: start: 20080130, end: 20080806
  2. AVONEX [Suspect]
     Route: 030
     Dates: start: 20120607
  3. AVONEX [Suspect]
     Route: 030
     Dates: start: 20120317, end: 20120531

REACTIONS (2)
  - VISION BLURRED [None]
  - DIPLOPIA [None]
